FAERS Safety Report 8578860-2 (Version None)
Quarter: 2012Q3

REPORT INFORMATION
  Report Type: 
  Country: None (occurrence: None)
  Receive Date: 20120808
  Receipt Date: 20120807
  Transmission Date: 20120928
  Serious: Yes (Death, Hospitalization)
  Sender: FDA-Public Use
  Company Number: PHHO2010KR16463

PATIENT
  Sex: Male
  Weight: 54.2 kg

DRUGS (7)
  1. ETOPOSIDE [Concomitant]
     Dosage: UNK
     Dates: start: 20101006
  2. ASPIRIN [Concomitant]
  3. SPORANOX [Concomitant]
  4. LASIX [Concomitant]
  5. TASIGNA [Suspect]
     Indication: ACUTE LYMPHOCYTIC LEUKAEMIA
     Dosage: UNK
     Dates: start: 20100728, end: 20101016
  6. PLAVIX [Concomitant]
  7. CYTARABINE [Concomitant]
     Dosage: UNK
     Dates: start: 20101006

REACTIONS (7)
  - RENAL FAILURE ACUTE [None]
  - MENTAL STATUS CHANGES [None]
  - HYPOTENSION [None]
  - SEPTIC SHOCK [None]
  - PYREXIA [None]
  - KLEBSIELLA SEPSIS [None]
  - ACUTE MYOCARDIAL INFARCTION [None]
